FAERS Safety Report 5006536-7 (Version None)
Quarter: 2006Q2

REPORT INFORMATION
  Report Type: 
  Country: None (occurrence: None)
  Receive Date: 20060516
  Receipt Date: 20060503
  Transmission Date: 20061013
  Serious: Yes (Hospitalization)
  Sender: FDA-Public Use
  Company Number: 2006PV013188

PATIENT
  Age: 50 Year
  Sex: Female
  Weight: 174.1813 kg

DRUGS (4)
  1. BYETTA [Suspect]
     Indication: DIABETES MELLITUS NON-INSULIN-DEPENDENT
     Dosage: 5 MCG; BID; SC
     Route: 058
     Dates: start: 20050706, end: 20051130
  2. BYETTA [Suspect]
     Indication: DIABETES MELLITUS NON-INSULIN-DEPENDENT
     Dosage: 5 MCG; BID; SC
     Route: 058
     Dates: start: 20060426
  3. HUMULIN N [Concomitant]
  4. NOVOLOG [Concomitant]

REACTIONS (6)
  - BLISTER [None]
  - BLOOD GLUCOSE INCREASED [None]
  - BODY TEMPERATURE INCREASED [None]
  - CELLULITIS [None]
  - LYMPHOEDEMA [None]
  - WEIGHT DECREASED [None]
